FAERS Safety Report 4378127-2 (Version None)
Quarter: 2004Q2

REPORT INFORMATION
  Report Type: 
  Country: None (occurrence: None)
  Receive Date: 20040609
  Receipt Date: 20040526
  Transmission Date: 20050107
  Serious: Yes (Hospitalization)
  Sender: FDA-Public Use
  Company Number: JP_040503087

PATIENT
  Age: 12 Year
  Sex: Female
  Weight: 40 kg

DRUGS (13)
  1. ONCOVIN [Suspect]
     Indication: NON-HODGKIN'S LYMPHOMA
     Dosage: 1.5 MG OTHER
     Route: 050
     Dates: start: 20020118, end: 20020311
  2. PREDNISOLONE [Concomitant]
  3. DECADRON #1  (DEXAMETHASONE SODIUM PHOSPHATE) [Concomitant]
  4. CYCLOPHOSPHAMIDE [Concomitant]
  5. ADRIAMYCIN PFS [Concomitant]
  6. ELSPAR [Concomitant]
  7. METHOTREXATE [Concomitant]
  8. CYTARABINE [Concomitant]
  9. HYDROCORTISONE SODIUM SUCCINATE [Concomitant]
  10. BAKTAR [Concomitant]
  11. ALLOPURINOL [Concomitant]
  12. POLYMYCIN B SULFATE [Concomitant]
  13. FUNGIZONE [Concomitant]

REACTIONS (27)
  - ACTIVATED PARTIAL THROMBOPLASTIN TIME PROLONGED [None]
  - ANGIONEUROTIC OEDEMA [None]
  - ANGIOPATHY [None]
  - BLOOD ALBUMIN DECREASED [None]
  - BLOOD CALCIUM DECREASED [None]
  - BLOOD CHLORIDE DECREASED [None]
  - BLOOD FIBRINOGEN DECREASED [None]
  - BLOOD GLUCOSE INCREASED [None]
  - BLOOD LACTATE DEHYDROGENASE INCREASED [None]
  - BLOOD PRESSURE SYSTOLIC INCREASED [None]
  - BLOOD SODIUM DECREASED [None]
  - C-REACTIVE PROTEIN INCREASED [None]
  - CEREBRAL INFARCTION [None]
  - CLONIC CONVULSION [None]
  - CONVULSION [None]
  - CSF CELL COUNT ABNORMAL [None]
  - CSF GLUCOSE ABNORMAL [None]
  - CSF PROTEIN INCREASED [None]
  - DRUG INTERACTION [None]
  - HAEMOGLOBIN DECREASED [None]
  - HEADACHE [None]
  - HEART RATE INCREASED [None]
  - HYPERTENSION [None]
  - JOINT DISLOCATION [None]
  - LEUKOENCEPHALOPATHY [None]
  - PROTEIN TOTAL DECREASED [None]
  - WHITE BLOOD CELL COUNT DECREASED [None]
